FAERS Safety Report 4501828-X (Version None)
Quarter: 2004Q4

REPORT INFORMATION
  Report Type: 
  Country: None (occurrence: None)
  Receive Date: 20041115
  Receipt Date: 20041115
  Transmission Date: 20050328
  Serious: Yes (Life-Threatening, Hospitalization)
  Sender: FDA-Public Use
  Company Number: None

PATIENT
  Age: 76 Year
  Sex: Male
  Weight: 72.1 kg

DRUGS (17)
  1. WARFARIN [Suspect]
  2. TRAVOPROST [Concomitant]
  3. DORZOLAMIDE/TIMOLOL [Concomitant]
  4. CALCITRIOL [Concomitant]
  5. CALCIUM ACETATE [Concomitant]
  6. DILTIAZEM [Concomitant]
  7. EPOGEN [Concomitant]
  8. FERROUS SULFATE TAB [Concomitant]
  9. FOLIC ACID [Concomitant]
  10. FUROSEMIDE [Concomitant]
  11. PSYLLIUM MUCILLOID PWD SUGAR FREE [Concomitant]
  12. INSULIN SYRINGES [Concomitant]
  13. DILTIAZEM [Concomitant]
  14. ACETAMINOPHEN W/ CODEINE [Concomitant]
  15. MEGESTROL [Concomitant]
  16. INFLUENZA VIRUS VACCINE [Concomitant]
  17. COLCHICINE [Concomitant]

REACTIONS (2)
  - EAR HAEMORRHAGE [None]
  - INTERNATIONAL NORMALISED RATIO INCREASED [None]
